FAERS Safety Report 15448014 (Version 1)
Quarter: 2018Q3

REPORT INFORMATION
  Report Type: Spontaneous
  Country: US (occurrence: US)
  Receive Date: 20180928
  Receipt Date: 20180928
  Transmission Date: 20181010
  Serious: Yes (Hospitalization, Other)
  Sender: FDA-Public Use
  Company Number: US-009507513-1809USA011032

PATIENT
  Age: 46 Year
  Sex: Male

DRUGS (6)
  1. ZEMURON [Suspect]
     Active Substance: ROCURONIUM BROMIDE
     Indication: ENDOTRACHEAL INTUBATION
     Dosage: 80 MG, UNK
  2. ETOMIDATE. [Suspect]
     Active Substance: ETOMIDATE
     Indication: ENDOTRACHEAL INTUBATION
     Dosage: 20 MG, UNK
  3. OXYGEN. [Concomitant]
     Active Substance: OXYGEN
     Indication: APNOEA
     Dosage: 100 % O2, BAG MASK
     Route: 055
  4. PROPOFOL. [Concomitant]
     Active Substance: PROPOFOL
     Indication: SEDATIVE THERAPY
     Dosage: 60 MG, BOLUS
  5. PROPOFOL. [Concomitant]
     Active Substance: PROPOFOL
     Dosage: 40 MG, THREE ADDITIONAL ALIQUOTS
  6. ADDERALL [Concomitant]
     Active Substance: AMPHETAMINE ASPARTATE\AMPHETAMINE SULFATE\DEXTROAMPHETAMINE SACCHARATE\DEXTROAMPHETAMINE SULFATE
     Indication: ATTENTION DEFICIT/HYPERACTIVITY DISORDER

REACTIONS (1)
  - Thyrotoxic crisis [Unknown]
